FAERS Safety Report 10794227 (Version 6)
Quarter: 2015Q4

REPORT INFORMATION
  Report Type: Report from Study
  Country: US (occurrence: US)
  Receive Date: 20150213
  Receipt Date: 20151209
  Transmission Date: 20160304
  Serious: Yes (Hospitalization)
  Sender: FDA-Public Use
  Company Number: US-ACTELION-A-NJ2015-112669

PATIENT
  Age: 84 Year
  Sex: Female

DRUGS (4)
  1. TRACLEER [Suspect]
     Active Substance: BOSENTAN
     Indication: PULMONARY ARTERIAL HYPERTENSION
     Dosage: UNK
     Route: 048
  2. COUMADIN [Concomitant]
     Active Substance: WARFARIN SODIUM
  3. PLAVIX [Concomitant]
     Active Substance: CLOPIDOGREL BISULFATE
  4. TRACLEER [Suspect]
     Active Substance: BOSENTAN
     Dosage: UNK
     Route: 048

REACTIONS (10)
  - Atrial fibrillation [Unknown]
  - Pneumonia [Unknown]
  - Cardiac pacemaker insertion [Unknown]
  - Multiple allergies [Unknown]
  - Syncope [Unknown]
  - Respiratory failure [Unknown]
  - Dyspnoea [Unknown]
  - Loss of consciousness [Unknown]
  - Panic attack [Unknown]
  - Asthenia [Unknown]

NARRATIVE: CASE EVENT DATE: 20150125
